FAERS Safety Report 22936869 (Version 3)
Quarter: 2024Q3

REPORT INFORMATION
  Report Type: Spontaneous
  Country: US (occurrence: US)
  Receive Date: 20230912
  Receipt Date: 20240801
  Transmission Date: 20241017
  Serious: No
  Sender: BOEHRINGER INGELHEIM
  Company Number: US-BoehringerIngelheim-2023-BI-260830

PATIENT
  Sex: Female

DRUGS (2)
  1. JARDIANCE [Suspect]
     Active Substance: EMPAGLIFLOZIN
     Indication: Product used for unknown indication
  2. JARDIANCE [Suspect]
     Active Substance: EMPAGLIFLOZIN
     Route: 048

REACTIONS (1)
  - Hypoacusis [Unknown]
